FAERS Safety Report 6884328-1 (Version None)
Quarter: 2010Q3

REPORT INFORMATION
  Report Type: 
  Country: None (occurrence: None)
  Receive Date: 20100729
  Receipt Date: 20070625
  Transmission Date: 20110219
  Serious: Yes (Hospitalization)
  Sender: FDA-Public Use
  Company Number: US-PFIZER INC-2007052599

PATIENT
  Sex: Female

DRUGS (3)
  1. CELEBREX [Suspect]
     Indication: ARTHRITIS
  2. VIOXX [Suspect]
     Indication: ARTHRITIS
     Dates: start: 20010101
  3. OMEPRAZOLE [Suspect]
     Dates: start: 20051001

REACTIONS (2)
  - CEREBROVASCULAR ACCIDENT [None]
  - DYSPEPSIA [None]
